FAERS Safety Report 9658088 (Version 1)
Quarter: 2013Q4

REPORT INFORMATION
  Report Type: Spontaneous
  Country: BR (occurrence: BR)
  Receive Date: 20131030
  Receipt Date: 20131030
  Transmission Date: 20140711
  Serious: Yes (Other)
  Sender: FDA-Public Use
  Company Number: PHHY2013BR119789

PATIENT
  Sex: Female
  Weight: 53 kg

DRUGS (2)
  1. COR MIO [Suspect]
     Indication: ARRHYTHMIA
     Dosage: 200 MG, QD
     Route: 048
     Dates: start: 201308, end: 20131015
  2. COR MIO [Suspect]
     Indication: DYSPNOEA

REACTIONS (4)
  - Cardiomegaly [Recovered/Resolved]
  - Malaise [Recovered/Resolved]
  - Dyspnoea [Recovered/Resolved]
  - Muscular weakness [Recovered/Resolved]
